FAERS Safety Report 6600305-X (Version None)
Quarter: 2010Q1

REPORT INFORMATION
  Report Type: 
  Country: None (occurrence: None)
  Receive Date: 20100224
  Receipt Date: 20100119
  Transmission Date: 20100710
  Serious: Yes (Death, Other)
  Sender: FDA-Public Use
  Company Number: US-BAXTER-2009BH006694

PATIENT
  Age: 67 Year
  Sex: Male
  Weight: 104 kg

DRUGS (7)
  1. HEPARIN SODIUM INJECTION [Suspect]
     Indication: PULMONARY EMBOLISM
     Route: 042
     Dates: start: 20080212, end: 20080212
  2. HEPARIN SODIUM 10,000 UNITS IN SODIUM CHLORIDE 0.45% [Suspect]
     Indication: PULMONARY EMBOLISM
     Route: 042
     Dates: start: 20080212, end: 20080217
  3. ALTEPLASE [Suspect]
     Indication: CORONARY ARTERY THROMBOSIS
     Route: 065
     Dates: start: 20080213, end: 20080213
  4. DORZOLAMIDE HCL AND TIMOLOL MALEATE [Concomitant]
     Indication: DRUG USE FOR UNKNOWN INDICATION
     Route: 065
  5. XALATAN [Concomitant]
     Indication: DRUG USE FOR UNKNOWN INDICATION
     Route: 065
  6. MEGESTROL ACETATE [Concomitant]
     Indication: DRUG USE FOR UNKNOWN INDICATION
     Route: 065
  7. ESTROGENS [Concomitant]
     Indication: PROSTATE CANCER
     Route: 030

REACTIONS (19)
  - ACUTE RESPIRATORY FAILURE [None]
  - AORTIC EMBOLUS [None]
  - ARRHYTHMIA [None]
  - ATRIAL FIBRILLATION [None]
  - BACTERIAL INFECTION [None]
  - CARDIO-RESPIRATORY ARREST [None]
  - CEREBRAL HAEMORRHAGE [None]
  - CONFUSIONAL STATE [None]
  - FRONTOTEMPORAL DEMENTIA [None]
  - HYPERSENSITIVITY [None]
  - HYPOKALAEMIA [None]
  - LEUKOCYTOSIS [None]
  - MENTAL STATUS CHANGES [None]
  - MYOCARDIAL INFARCTION [None]
  - NAUSEA [None]
  - OEDEMA [None]
  - PROSTATE CANCER [None]
  - PULMONARY EMBOLISM [None]
  - VOMITING [None]
